FAERS Safety Report 15975886 (Version 1)
Quarter: 2019Q1

REPORT INFORMATION
  Report Type: Spontaneous
  Country: US (occurrence: US)
  Receive Date: 20190218
  Receipt Date: 20190218
  Transmission Date: 20190418
  Serious: Yes (Other)
  Sender: FDA-Public Use
  Company Number: US-ASTRAZENECA-2019SE26548

PATIENT
  Sex: Female

DRUGS (5)
  1. DALIRESP [Suspect]
     Active Substance: ROFLUMILAST
     Dosage: UNKNOWN
     Route: 048
  2. REVLIMID [Concomitant]
     Active Substance: LENALIDOMIDE
  3. DALIRESP [Suspect]
     Active Substance: ROFLUMILAST
     Dosage: DOSE INCREASED UNKNOWN
     Route: 048
  4. DALIRESP [Suspect]
     Active Substance: ROFLUMILAST
     Dosage: UNKNOWN
     Route: 048
     Dates: start: 20190206
  5. QVAR [Concomitant]
     Active Substance: BECLOMETHASONE DIPROPIONATE

REACTIONS (4)
  - Malaise [Recovered/Resolved]
  - Platelet count decreased [Not Recovered/Not Resolved]
  - Haemoglobin decreased [Not Recovered/Not Resolved]
  - Influenza like illness [Recovered/Resolved]

NARRATIVE: CASE EVENT DATE: 201808
